FAERS Safety Report 17670453 (Version 2)
Quarter: 2020Q2

REPORT INFORMATION
  Report Type: Spontaneous
  Country: US (occurrence: US)
  Receive Date: 20200415
  Receipt Date: 20200422
  Transmission Date: 20200713
  Serious: Yes (Other)
  Sender: FDA-Public Use
  Company Number: US-PFIZER INC-2020149696

PATIENT
  Age: 41 Year
  Sex: Male

DRUGS (3)
  1. LIDOCAINE HCL [Suspect]
     Active Substance: LIDOCAINE HYDROCHLORIDE
     Dosage: 50 MG, UNK  (TWO 50 MG DOSES, FIRST SEVERAL HOURS IN THE HOSPITAL)
     Route: 042
     Dates: start: 196702
  2. LIDOCAINE HCL [Suspect]
     Active Substance: LIDOCAINE HYDROCHLORIDE
     Indication: VENTRICULAR EXTRASYSTOLES
     Dosage: 600 MG, UNK (INFUSION)
     Route: 042
     Dates: start: 196702
  3. LIDOCAINE HCL [Suspect]
     Active Substance: LIDOCAINE HYDROCHLORIDE
     Dosage: 800 MG, UNK (INFUSION)
     Route: 042
     Dates: start: 196702

REACTIONS (5)
  - Neurotoxicity [Recovered/Resolved]
  - Product use in unapproved indication [Unknown]
  - Somnolence [Recovering/Resolving]
  - Decerebrate posture [Recovered/Resolved]
  - Off label use [Unknown]

NARRATIVE: CASE EVENT DATE: 196702
